FAERS Safety Report 8840478 (Version 1)
Quarter: 2012Q4

REPORT INFORMATION
  Report Type: 
  Country: US (occurrence: US)
  Receive Date: 20121015
  Receipt Date: 20121015
  Transmission Date: 20130627
  Serious: Yes (Other)
  Sender: FDA-Public Use
  Company Number: US-ROCHE-1131781

PATIENT
  Sex: Female
  Weight: 74.8 kg

DRUGS (5)
  1. PROTROPIN [Suspect]
     Indication: HYPOPITUITARISM
     Route: 058
     Dates: start: 1993
  2. SYNTHROID [Concomitant]
     Route: 065
  3. DESOGEN [Concomitant]
  4. CORTEF [Concomitant]
     Route: 065
  5. DDAVP [Concomitant]
     Route: 065

REACTIONS (3)
  - Pupillary reflex impaired [Unknown]
  - Osteoporosis [Unknown]
  - Strabismus [Unknown]
